FAERS Safety Report 4594588-8 (Version None)
Quarter: 2005Q1

REPORT INFORMATION
  Report Type: 
  Country: None (occurrence: None)
  Receive Date: 20050223
  Receipt Date: 20050201
  Transmission Date: 20050727
  Serious: No
  Sender: FDA-Public Use
  Company Number: 2005-32

PATIENT
  Sex: Male

DRUGS (1)
  1. DAPSONE [Suspect]

REACTIONS (3)
  - DRUG INTERACTION POTENTIATION [None]
  - MEDICATION ERROR [None]
  - PROTHROMBIN TIME PROLONGED [None]
